FAERS Safety Report 8871134 (Version 1)
Quarter: 2012Q4

REPORT INFORMATION
  Report Type: 
  Country: US (occurrence: US)
  Receive Date: 20121026
  Receipt Date: 20121026
  Transmission Date: 20130627
  Serious: No
  Sender: FDA-Public Use
  Company Number: US-AMGEN-USASP2012042393

PATIENT
  Age: 56 Year
  Sex: Female
  Weight: 106.58 kg

DRUGS (13)
  1. ENBREL [Suspect]
     Indication: PRODUCT USED FOR UNKNOWN INDICATION
     Dosage: 50 mg, qwk
  2. XANAX [Concomitant]
     Dosage: 0.5 mg, UNK
  3. TOPAMAX [Concomitant]
     Dosage: 100 mg, UNK
  4. LIPITOR [Concomitant]
     Dosage: 10 mg, UNK
  5. VICODIN ES [Concomitant]
     Dosage: 7.5 to 750
  6. DIOVAN HCT [Concomitant]
     Dosage: 160-25 mg
  7. CYCLOBENZAPRINE [Concomitant]
     Dosage: 10 mg, UNK
  8. OMEPRAZOLE [Concomitant]
     Dosage: 10 mg, UNK
  9. DIAZEPAM [Concomitant]
     Dosage: 5 mg, UNK
  10. LEXAPRO [Concomitant]
     Dosage: 10 mg, UNK
  11. PERCOCET                           /00446701/ [Concomitant]
     Dosage: 5-325 mg
  12. CALCIUM +D                         /00188401/ [Concomitant]
     Dosage: UNK
  13. COLACE [Concomitant]
     Dosage: 100 mg, UNK

REACTIONS (2)
  - Cough [Unknown]
  - Wheezing [Unknown]
